FAERS Safety Report 4466882-2 (Version None)
Quarter: 2004Q4

REPORT INFORMATION
  Report Type: 
  Country: None (occurrence: None)
  Receive Date: 20041001
  Receipt Date: 20040921
  Transmission Date: 20050328
  Serious: No
  Sender: FDA-Public Use
  Company Number: 04H-163-0274453-00

PATIENT
  Age: 53 Year
  Sex: Female
  Weight: 72.5755 kg

DRUGS (6)
  1. MARCAINE [Suspect]
     Indication: ANAESTHESIA
     Dosage: 50 ML, ONCE, INTRANEURAL
     Route: 042
     Dates: start: 20040909, end: 20040909
  2. CELECOXIB [Concomitant]
  3. NADOLOL [Concomitant]
  4. CRESTOR [Concomitant]
  5. FENOFIBRATE [Concomitant]
  6. HYDROCHLOROTHIAZIDE [Concomitant]

REACTIONS (3)
  - HEADACHE [None]
  - HYPERTENSION [None]
  - PHARMACEUTICAL PRODUCT COMPLAINT [None]
